FAERS Safety Report 8512399-5 (Version None)
Quarter: 2012Q3

REPORT INFORMATION
  Report Type: 
  Country: None (occurrence: None)
  Receive Date: 20120716
  Receipt Date: 20120712
  Transmission Date: 20120928
  Serious: Yes (Hospitalization)
  Sender: FDA-Public Use
  Company Number: US-ROCHE-1087541

PATIENT
  Sex: Male
  Weight: 54.389 kg

DRUGS (7)
  1. PEGASYS [Suspect]
     Indication: HEPATITIS C
     Route: 058
     Dates: start: 20120119
  2. COPEGUS [Suspect]
     Indication: HEPATITIS C
  3. RIFAXIMIN [Concomitant]
  4. SYNTHROID [Concomitant]
  5. LISINOPRIL [Concomitant]
  6. TELAPREVIR [Suspect]
     Indication: HEPATITIS C
  7. LACTULOSE [Concomitant]

REACTIONS (1)
  - EPIPLOIC APPENDAGITIS [None]
